FAERS Safety Report 6065725-3 (Version None)
Quarter: 2009Q1

REPORT INFORMATION
  Report Type: 
  Country: None (occurrence: None)
  Receive Date: 20090202
  Receipt Date: 20090122
  Transmission Date: 20090719
  Serious: Yes (Other)
  Sender: FDA-Public Use
  Company Number: CHPA2008US21376

PATIENT
  Age: 61 Year
  Sex: Male

DRUGS (2)
  1. EXCEDRIN NKNOWN (NCH) [Suspect]
     Indication: ANALGESIA
     Dosage: PRN, ORAL
     Route: 048
     Dates: end: 20050101
  2. NEURONTIN [Concomitant]

REACTIONS (2)
  - GASTROINTESTINAL HAEMORRHAGE [None]
  - PRODUCT QUALITY ISSUE [None]
